FAERS Safety Report 10495516 (Version 2)
Quarter: 2014Q4

REPORT INFORMATION
  Report Type: Report from Study
  Country: None (occurrence: DE)
  Receive Date: 20141003
  Receipt Date: 20141003
  Transmission Date: 20150528
  Serious: Yes (Hospitalization)
  Sender: FDA-Public Use
  Company Number: DE-CELGENE-062-50794-14085495

PATIENT
  Age: 71 Year
  Sex: Male
  Weight: 65 kg

DRUGS (6)
  1. AZACITIDINE. [Suspect]
     Active Substance: AZACITIDINE
     Indication: MYELODYSPLASTIC SYNDROME
     Route: 058
     Dates: start: 20140127, end: 20140822
  2. ONDANSETRON [Concomitant]
     Active Substance: ONDANSETRON
     Indication: VOMITING
     Dosage: 200 MILLIGRAM
     Route: 048
     Dates: start: 20140127, end: 20140822
  3. AZACITIDINE. [Suspect]
     Active Substance: AZACITIDINE
     Dosage: 1 MILLIGRAM
     Route: 065
  4. VFEND [Concomitant]
     Active Substance: VORICONAZOLE
     Indication: PROPHYLAXIS
     Dosage: 250 MILLIGRAM
     Route: 065
     Dates: start: 201401
  5. EXJADE [Concomitant]
     Active Substance: DEFERASIROX
     Indication: SERUM FERRITIN INCREASED
     Dosage: 500 MILLIGRAM
     Route: 048
     Dates: start: 201401
  6. CIPROFLOXACINE [Concomitant]
     Active Substance: CIPROFLOXACIN
     Indication: PROPHYLAXIS
     Route: 065
     Dates: start: 201401

REACTIONS (2)
  - Dysphonia [Not Recovered/Not Resolved]
  - Dyspnoea [Not Recovered/Not Resolved]

NARRATIVE: CASE EVENT DATE: 20140823
